FAERS Safety Report 11150331 (Version 1)
Quarter: 2015Q2

REPORT INFORMATION
  Report Type: Spontaneous
  Country: BR (occurrence: BR)
  Receive Date: 20150531
  Receipt Date: 20150531
  Transmission Date: 20150821
  Serious: Yes (Other)
  Sender: FDA-Public Use
  Company Number: BR-SA-2015SA069302

PATIENT
  Sex: Female
  Weight: 2.65 kg

DRUGS (4)
  1. DACTIL [Concomitant]
     Indication: PROPHYLAXIS
     Dates: start: 201504, end: 201505
  2. FOLIFER [Concomitant]
     Indication: IRON DEFICIENCY
     Dates: start: 201503, end: 201505
  3. RIFALDIN [Suspect]
     Active Substance: RIFAMPIN
     Indication: MATERNAL EXPOSURE TIMING UNSPECIFIED
     Route: 064
  4. MINERALS NOS/FOLIC ACID/VITAMINS NOS/IRON [Concomitant]
     Indication: VITAMIN SUPPLEMENTATION
     Dates: start: 201504, end: 201505

REACTIONS (3)
  - Vertical infection transmission [Recovered/Resolved]
  - Brucellosis [Recovered/Resolved]
  - Foetal exposure during pregnancy [Unknown]
